FAERS Safety Report 10504410 (Version 1)
Quarter: 2014Q4

REPORT INFORMATION
  Report Type: Spontaneous
  Country: JP (occurrence: JP)
  Receive Date: 20141008
  Receipt Date: 20141008
  Transmission Date: 20150528
  Serious: Yes (Other)
  Sender: FDA-Public Use
  Company Number: JP-MALLINCKRODT-T201403666

PATIENT
  Age: 86 Year
  Sex: Male
  Weight: 47.8 kg

DRUGS (15)
  1. METHADONE [Suspect]
     Active Substance: METHADONE HYDROCHLORIDE
     Indication: CANCER PAIN
     Dosage: 10 MG, (20 MG DAILY DOSE)
     Route: 048
     Dates: start: 20140616, end: 20140623
  2. MORPHINE HCL [Concomitant]
     Active Substance: MORPHINE HYDROCHLORIDE
     Dosage: 3.5 - 2.5 MG, PRN
     Route: 051
     Dates: start: 20140615
  3. CALONAL [Concomitant]
     Active Substance: ACETAMINOPHEN
     Dosage: 2700 MG, UNK
     Route: 048
     Dates: end: 20140623
  4. LOXOPROFEN [Concomitant]
     Active Substance: LOXOPROFEN
     Dosage: 180 MG, UNK
     Route: 048
  5. NEXIUM [Concomitant]
     Active Substance: ESOMEPRAZOLE MAGNESIUM
     Dosage: 20 MG, UNK
     Route: 048
  6. ALLEGRA [Concomitant]
     Active Substance: FEXOFENADINE HYDROCHLORIDE
     Dosage: 120 MG, UNK
     Route: 048
  7. PANALDINE [Concomitant]
     Active Substance: TICLOPIDINE HYDROCHLORIDE
     Dosage: 100 MG, UNK
     Route: 048
  8. URSO [Concomitant]
     Active Substance: URSODIOL
     Dosage: 600 MG, UNK
     Route: 048
     Dates: start: 20140621
  9. METHADONE [Suspect]
     Active Substance: METHADONE HYDROCHLORIDE
     Dosage: 10 MG, (10 MG DAILY DOSE)
     Route: 048
     Dates: start: 20140623
  10. SIGMART [Concomitant]
     Active Substance: NICORANDIL
     Dosage: 15 MG, UNK
     Route: 048
  11. MORPHINE HCL [Concomitant]
     Active Substance: MORPHINE HYDROCHLORIDE
     Dosage: 12 MG, UNK
     Route: 051
     Dates: start: 20140617, end: 20140623
  12. MORPHINE HCL [Concomitant]
     Active Substance: MORPHINE HYDROCHLORIDE
     Dosage: 60 MG, UNK
     Route: 051
     Dates: start: 20140625, end: 20140704
  13. REBAMIPIDE [Concomitant]
     Active Substance: REBAMIPIDE
     Dosage: 300 MG, UNK
     Route: 048
     Dates: end: 20140623
  14. MAGLAX [Concomitant]
     Active Substance: MAGNESIUM OXIDE
     Dosage: 990 MG, UNK
     Route: 048
  15. ADALAT [Concomitant]
     Active Substance: NIFEDIPINE
     Dosage: 20 MG, UNK
     Route: 048

REACTIONS (3)
  - Nausea [Recovering/Resolving]
  - Hepatic function abnormal [Recovering/Resolving]
  - Dizziness [Recovering/Resolving]

NARRATIVE: CASE EVENT DATE: 20140619
